FAERS Safety Report 12891638 (Version 2)
Quarter: 2017Q1

REPORT INFORMATION
  Report Type: Spontaneous
  Country: DK (occurrence: DK)
  Receive Date: 20161028
  Receipt Date: 20170131
  Transmission Date: 20170428
  Serious: Yes (Other)
  Sender: FDA-Public Use
  Company Number: DK-ROCHE-1847579

PATIENT
  Sex: Female

DRUGS (6)
  1. XELODA [Concomitant]
     Active Substance: CAPECITABINE
     Indication: BREAST CANCER
     Route: 048
     Dates: start: 200606, end: 200701
  2. ZOMETA [Suspect]
     Active Substance: ZOLEDRONIC ACID
     Indication: BREAST CANCER METASTATIC
     Route: 065
     Dates: start: 20050909, end: 200606
  3. BONDRONAT [Suspect]
     Active Substance: IBANDRONIC ACID
     Indication: BREAST CANCER METASTATIC
     Route: 065
     Dates: start: 200606, end: 200701
  4. EPIRUBICIN [Concomitant]
     Active Substance: EPIRUBICIN
     Indication: BREAST CANCER
     Route: 042
     Dates: start: 200704, end: 200710
  5. TAXOTERE [Concomitant]
     Active Substance: DOCETAXEL
     Indication: BREAST CANCER
     Dosage: 125 MG REDUCED TO 95 MG AFTER 21 WEEKS.
     Route: 042
     Dates: start: 20050913, end: 20060505
  6. ZOMETA [Suspect]
     Active Substance: ZOLEDRONIC ACID
     Indication: BREAST CANCER METASTATIC
     Route: 065
     Dates: start: 200701, end: 20070817

REACTIONS (4)
  - Osteonecrosis of jaw [Not Recovered/Not Resolved]
  - Exposed bone in jaw [Unknown]
  - Pain [Unknown]
  - Oral pustule [Unknown]

NARRATIVE: CASE EVENT DATE: 2008
